FAERS Safety Report 23272170 (Version 1)
Quarter: 2023Q4

REPORT INFORMATION
  Report Type: Spontaneous
  Country: JP (occurrence: JP)
  Receive Date: 20231207
  Receipt Date: 20231207
  Transmission Date: 20240109
  Serious: Yes (Other)
  Sender: FDA-Public Use
  Company Number: JP-Eisai Inc-E2090-02035-SPO-JP

PATIENT

DRUGS (5)
  1. ZONISAMIDE [Suspect]
     Active Substance: ZONISAMIDE
     Indication: Epilepsy
     Dosage: 60 MG, BID, EXCEGRAN ORAL POWDER
     Route: 048
     Dates: start: 19960224
  2. DEPAKENE [Suspect]
     Active Substance: VALPROIC ACID
     Indication: Epilepsy
     Dosage: 600 MG, QD, GRANULE POWDER
     Route: 048
     Dates: start: 19930518
  3. PHENYTOIN SODIUM [Suspect]
     Active Substance: PHENYTOIN SODIUM
     Indication: Epilepsy
     Dosage: 150 MG, QD
     Route: 048
     Dates: start: 19930116, end: 20090930
  4. PHENOBARBITAL [Concomitant]
     Active Substance: PHENOBARBITAL
     Indication: Epilepsy
     Dosage: 120 MG, QD
     Route: 048
     Dates: start: 19921005, end: 19930518
  5. PHENOBARBITAL [Concomitant]
     Active Substance: PHENOBARBITAL
     Dosage: 120 MG, QD
     Route: 048
     Dates: start: 19941025, end: 19971202

REACTIONS (3)
  - Hypothyroidism [Recovered/Resolved]
  - Failure to thrive [Recovered/Resolved]
  - Hypothyroidism [Recovered/Resolved]

NARRATIVE: CASE EVENT DATE: 19971202
